FAERS Safety Report 4375868-8 (Version None)
Quarter: 2004Q2

REPORT INFORMATION
  Report Type: 
  Country: None (occurrence: None)
  Receive Date: 20040609
  Receipt Date: 20040609
  Transmission Date: 20050107
  Serious: Yes (Hospitalization)
  Sender: FDA-Public Use
  Company Number: None

PATIENT
  Age: 72 Year
  Sex: Male
  Weight: 104.4 kg

DRUGS (7)
  1. INTEGRILIN [Suspect]
     Indication: ANTIPLATELET THERAPY
     Dosage: 2( 9.5ML BOLUSES) 17ML/HR IV
     Route: 042
     Dates: start: 20040528, end: 20040529
  2. FENTANYL [Concomitant]
  3. MIDAZOLAM HCL [Concomitant]
  4. CEFAZOLIN [Concomitant]
  5. ASPIRIN [Concomitant]
  6. PEPCID [Concomitant]
  7. PLAVIX [Concomitant]

REACTIONS (1)
  - CATHETER SITE HAEMORRHAGE [None]
